FAERS Safety Report 9615377 (Version 1)
Quarter: 2013Q4

REPORT INFORMATION
  Report Type: Spontaneous
  Country: FR (occurrence: FR)
  Receive Date: 20131011
  Receipt Date: 20131011
  Transmission Date: 20140711
  Serious: Yes (Hospitalization)
  Sender: FDA-Public Use
  Company Number: FR-009507513-1310FRA001301

PATIENT
  Age: 79 Year
  Sex: Female

DRUGS (1)
  1. PROGLICEM [Suspect]
     Indication: HYPOGLYCAEMIA
     Dosage: UNK
     Route: 048
     Dates: start: 201207, end: 201208

REACTIONS (5)
  - Rash maculo-papular [Recovered/Resolved]
  - Rash generalised [Recovered/Resolved]
  - Skin exfoliation [Recovered/Resolved]
  - Sodium retention [Recovered/Resolved]
  - Fluid retention [Recovered/Resolved]
